FAERS Safety Report 10763260 (Version 1)
Quarter: 2015Q1

REPORT INFORMATION
  Report Type: Spontaneous
  Country: BE (occurrence: BE)
  Receive Date: 20150204
  Receipt Date: 20150204
  Transmission Date: 20150721
  Serious: Yes (Hospitalization, Other)
  Sender: FDA-Public Use
  Company Number: BE-NOVOPROD-436771

PATIENT
  Age: 62 Year
  Sex: Male
  Weight: 84 kg

DRUGS (4)
  1. GLUCOPHAGE [Suspect]
     Active Substance: METFORMIN HYDROCHLORIDE
     Indication: WEIGHT CONTROL
     Dosage: UNK
     Route: 065
     Dates: end: 20141217
  2. NOVONORM [Suspect]
     Active Substance: REPAGLINIDE
     Indication: DIABETES MELLITUS
     Dosage: UNK
     Route: 065
  3. NOVONORM [Suspect]
     Active Substance: REPAGLINIDE
     Indication: WEIGHT CONTROL
  4. GLUCOPHAGE [Suspect]
     Active Substance: METFORMIN HYDROCHLORIDE
     Indication: DIABETES MELLITUS
     Dosage: UNK
     Route: 065
     Dates: start: 2006

REACTIONS (2)
  - Cholangiocarcinoma [Unknown]
  - Metastases to liver [Unknown]

NARRATIVE: CASE EVENT DATE: 20141217
